FAERS Safety Report 15882845 (Version 1)
Quarter: 2019Q1

REPORT INFORMATION
  Report Type: Spontaneous
  Country: DE (occurrence: DE)
  Receive Date: 20190129
  Receipt Date: 20190129
  Transmission Date: 20190417
  Serious: Yes (Other)
  Sender: FDA-Public Use
  Company Number: DE-AUROBINDO-AUR-APL-2019-004427

PATIENT
  Age: 12 Year
  Sex: Female

DRUGS (4)
  1. ADENOSINE. [Suspect]
     Active Substance: ADENOSINE
     Indication: CARDIOVERSION
     Dosage: 0.05 MILLIGRAM/KILOGRAM
     Route: 040
  2. ADENOSINE. [Suspect]
     Active Substance: ADENOSINE
     Dosage: 0.1 MILLIGRAM/KILOGRAM
     Route: 065
  3. AMIODARONE [Suspect]
     Active Substance: AMIODARONE
     Indication: ATRIAL FIBRILLATION
     Route: 065
  4. AMIODARONE [Suspect]
     Active Substance: AMIODARONE
     Indication: TACHYARRHYTHMIA

REACTIONS (4)
  - Drug ineffective [Unknown]
  - Chest pain [Unknown]
  - Blood pressure abnormal [Unknown]
  - Cardiac failure [Unknown]
